FAERS Safety Report 16760322 (Version 2)
Quarter: 2019Q4

REPORT INFORMATION
  Report Type: Spontaneous
  Country: US (occurrence: US)
  Receive Date: 20190830
  Receipt Date: 20191118
  Transmission Date: 20200122
  Serious: No
  Sender: FDA-Public Use
  Company Number: US-PFIZER INC-2019237395

PATIENT
  Age: 68 Year
  Sex: Female
  Weight: 91.16 kg

DRUGS (2)
  1. LYRICA [Suspect]
     Active Substance: PREGABALIN
     Indication: LABYRINTHITIS
     Dosage: 50 MG, 3X/DAY
     Dates: start: 20190531, end: 20190612
  2. LYRICA [Suspect]
     Active Substance: PREGABALIN
     Indication: DIZZINESS

REACTIONS (10)
  - Disturbance in attention [Recovered/Resolved]
  - Off label use [Unknown]
  - Somnolence [Recovered/Resolved]
  - Condition aggravated [Recovered/Resolved]
  - Fatigue [Recovered/Resolved]
  - Dizziness [Not Recovered/Not Resolved]
  - Drug ineffective for unapproved indication [Unknown]
  - Weight increased [Recovered/Resolved]
  - Fluid retention [Recovered/Resolved]
  - Depression [Recovered/Resolved]

NARRATIVE: CASE EVENT DATE: 2019
